FAERS Safety Report 11759727 (Version 1)
Quarter: 2015Q4

REPORT INFORMATION
  Report Type: Spontaneous
  Country: US (occurrence: US)
  Receive Date: 20151120
  Receipt Date: 20151120
  Transmission Date: 20160304
  Serious: No
  Sender: FDA-Public Use
  Company Number: US-JNJFOC-20151002407

PATIENT
  Age: 26 Year
  Sex: Female
  Weight: 61.24 kg

DRUGS (7)
  1. WOMENS ROGAINE [Suspect]
     Active Substance: MINOXIDIL
     Indication: ALOPECIA
     Route: 061
  2. ZIANA [Concomitant]
     Active Substance: CLINDAMYCIN PHOSPHATE\TRETINOIN
     Indication: ACNE
     Route: 061
  3. VITAMIN D [Concomitant]
     Active Substance: CHOLECALCIFEROL
     Indication: ACNE
     Dosage: 1 PER EVERY 3
     Route: 065
  4. ALL OTHER THERAPEUTIC DRUGS [Concomitant]
     Active Substance: UNSPECIFIED INGREDIENT
     Indication: ACNE
     Dosage: 1 YEAR
     Route: 065
  5. ONEXTON [Concomitant]
     Active Substance: BENZOYL PEROXIDE\CLINDAMYCIN PHOSPHATE
     Indication: PRODUCT USED FOR UNKNOWN INDICATION
     Route: 065
  6. WOMENS ROGAINE [Suspect]
     Active Substance: MINOXIDIL
     Route: 061
  7. NICOMID [Concomitant]
     Indication: ACNE
     Route: 065

REACTIONS (4)
  - Hypersensitivity [Recovered/Resolved]
  - Skin irritation [Recovered/Resolved]
  - Product use issue [Unknown]
  - Pruritus [Recovered/Resolved]
